FAERS Safety Report 5925725-8 (Version None)
Quarter: 2008Q3

REPORT INFORMATION
  Report Type: 
  Country: None (occurrence: None)
  Receive Date: 20080919
  Receipt Date: 20080818
  Transmission Date: 20090109
  Serious: Yes (Other)
  Sender: FDA-Public Use
  Company Number: US-WYE-H05631608

PATIENT
  Age: 39 Year
  Sex: Female
  Weight: 64.92 kg

DRUGS (6)
  1. PRISTIQ [Suspect]
     Indication: ANXIETY
     Dosage: 1/2 TABLET DAILY, ORAL : 50 MG 1X PER 1 TOT, ORAL
     Route: 048
     Dates: start: 20080814, end: 20080814
  2. PRISTIQ [Suspect]
     Indication: DEPRESSION
     Dosage: 1/2 TABLET DAILY, ORAL : 50 MG 1X PER 1 TOT, ORAL
     Route: 048
     Dates: start: 20080814, end: 20080814
  3. PRISTIQ [Suspect]
     Indication: ANXIETY
     Dosage: 1/2 TABLET DAILY, ORAL : 50 MG 1X PER 1 TOT, ORAL
     Route: 048
     Dates: start: 20080816
  4. PRISTIQ [Suspect]
     Indication: DEPRESSION
     Dosage: 1/2 TABLET DAILY, ORAL : 50 MG 1X PER 1 TOT, ORAL
     Route: 048
     Dates: start: 20080816
  5. KLONOPIN [Concomitant]
  6. IBUPROFEN [Concomitant]

REACTIONS (6)
  - DISSOCIATION [None]
  - FEELING ABNORMAL [None]
  - HEART RATE INCREASED [None]
  - MYDRIASIS [None]
  - UNEVALUABLE EVENT [None]
  - YAWNING [None]
